FAERS Safety Report 6427880-2 (Version None)
Quarter: 2009Q4

REPORT INFORMATION
  Report Type: 
  Country: None (occurrence: None)
  Receive Date: 20091105
  Receipt Date: 20091103
  Transmission Date: 20100525
  Serious: Yes (Life-Threatening, Other)
  Sender: FDA-Public Use
  Company Number: US-ROXANE LABORATORIES, INC.-2009-RO-01103RO

PATIENT
  Age: 66 Year
  Sex: Female

DRUGS (18)
  1. MORPHINE [Suspect]
     Indication: MULTIPLE SCLEROSIS
  2. ASPIRIN [Concomitant]
  3. ATRIUM [Concomitant]
  4. CELEBREX [Concomitant]
  5. DEPAKOTE [Concomitant]
  6. COLACE [Concomitant]
  7. CYMBALTA [Concomitant]
  8. IRON [Concomitant]
  9. HEPARIN [Concomitant]
  10. PRILOSEC [Concomitant]
  11. TRILEPTAL [Concomitant]
  12. LYRICA [Concomitant]
  13. PHENERGAN HCL [Concomitant]
  14. SENOKOT [Concomitant]
  15. TYLENOL [Concomitant]
  16. MAALOX [Concomitant]
  17. TUMS [Concomitant]
  18. MULTI-VITAMIN [Concomitant]

REACTIONS (7)
  - APPARENT DEATH [None]
  - DRUG ADMINISTRATION ERROR [None]
  - GAIT DISTURBANCE [None]
  - OVERDOSE [None]
  - PUPIL FIXED [None]
  - RESPIRATORY RATE DECREASED [None]
  - VISUAL IMPAIRMENT [None]
